FAERS Safety Report 10946270 (Version 1)
Quarter: 2015Q1

REPORT INFORMATION
  Report Type: Spontaneous
  Country: US (occurrence: None)
  Receive Date: 20150212
  Receipt Date: 20150212
  Transmission Date: 20150721
  Serious: No
  Sender: FDA-Public Use
  Company Number: TPA2011A08394

PATIENT
  Age: 78 Year
  Sex: Male
  Weight: 74.84 kg

DRUGS (7)
  1. GABAPENTIN. [Concomitant]
     Active Substance: GABAPENTIN
  2. ULORIC [Suspect]
     Active Substance: FEBUXOSTAT
     Indication: GOUT
     Route: 048
     Dates: start: 201111, end: 20111209
  3. CARVEDILOL. [Concomitant]
     Active Substance: CARVEDILOL
  4. TRAMADOL [Concomitant]
     Active Substance: TRAMADOL
  5. MIRAPEX [Concomitant]
     Active Substance: PRAMIPEXOLE DIHYDROCHLORIDE
  6. CHLORTHALIDONE. [Concomitant]
     Active Substance: CHLORTHALIDONE
  7. SIMVASTATIN. [Concomitant]
     Active Substance: SIMVASTATIN

REACTIONS (2)
  - Asthenia [None]
  - Blood pressure increased [None]

NARRATIVE: CASE EVENT DATE: 201112
